FAERS Safety Report 8373174-8 (Version None)
Quarter: 2012Q2

REPORT INFORMATION
  Report Type: 
  Country: None (occurrence: None)
  Receive Date: 20120521
  Receipt Date: 20120514
  Transmission Date: 20120825
  Serious: Yes (Hospitalization, Other)
  Sender: FDA-Public Use
  Company Number: US-TEVA-338071USA

PATIENT
  Age: 65 Year
  Sex: Female
  Weight: 50.3 kg

DRUGS (3)
  1. TREANDA [Suspect]
     Indication: LYMPHOMA
     Route: 042
     Dates: start: 20120417
  2. OFATUMUMAB [Suspect]
     Indication: LYMPHOMA
     Route: 042
     Dates: start: 20120417
  3. BORTEZOMIB [Suspect]
     Indication: LYMPHOMA
     Route: 040
     Dates: start: 20120417

REACTIONS (7)
  - HYPONATRAEMIA [None]
  - HYPOXIA [None]
  - ATRIAL FIBRILLATION [None]
  - HYPERCALCAEMIA [None]
  - ANXIETY [None]
  - URINARY TRACT INFECTION [None]
  - HYPOKALAEMIA [None]
